FAERS Safety Report 19455098 (Version 1)
Quarter: 2021Q2

REPORT INFORMATION
  Report Type: Spontaneous
  Country: CA (occurrence: CA)
  Receive Date: 20210623
  Receipt Date: 20210623
  Transmission Date: 20210717
  Serious: Yes (Death, Other)
  Sender: FDA-Public Use
  Company Number: CA-PFIZER INC-2021257975

PATIENT
  Age: 76 Year
  Sex: Female

DRUGS (1)
  1. LORBRENA [Suspect]
     Active Substance: LORLATINIB
     Indication: LUNG NEOPLASM MALIGNANT
     Dosage: 100 MG, DAILY
     Route: 048
     Dates: start: 20201127, end: 202105

REACTIONS (5)
  - Pneumonia [Fatal]
  - Asthenia [Unknown]
  - Oedema [Unknown]
  - Pain [Unknown]
  - Pathological fracture [Unknown]

NARRATIVE: CASE EVENT DATE: 20210605
